FAERS Safety Report 4803694-1 (Version None)
Quarter: 2005Q4

REPORT INFORMATION
  Report Type: 
  Country: None (occurrence: None)
  Receive Date: 20051014
  Receipt Date: 20051005
  Transmission Date: 20060501
  Serious: Yes (Hospitalization)
  Sender: FDA-Public Use
  Company Number: 2005137514

PATIENT
  Age: 62 Year
  Sex: Female

DRUGS (3)
  1. ATARAX [Suspect]
     Indication: COUGH
     Dosage: ONE DOSE FORM (1 IN 1 D), ORAL
     Route: 048
     Dates: start: 20050619, end: 20050620
  2. TRAMADOL HCL [Suspect]
     Indication: ILL-DEFINED DISORDER
  3. OXOMEMAZINE (OXOMEMAZINE) [Suspect]
     Indication: COUGH
     Dosage: ONE DOSE FORM (1 IN 1 D), ORAL
     Route: 048
     Dates: start: 20050619, end: 20050620

REACTIONS (6)
  - ACUTE GENERALISED EXANTHEMATOUS PUSTULOSIS [None]
  - BODY TEMPERATURE INCREASED [None]
  - CHILLS [None]
  - COUGH [None]
  - FLUSHING [None]
  - RED BLOOD CELL COUNT DECREASED [None]
